FAERS Safety Report 8070345-5 (Version None)
Quarter: 2012Q1

REPORT INFORMATION
  Report Type: 
  Country: None (occurrence: None)
  Receive Date: 20120125
  Receipt Date: 20120119
  Transmission Date: 20120608
  Serious: Yes (Death)
  Sender: FDA-Public Use
  Company Number: EG-SANOFI-AVENTIS-2012SA004596

PATIENT
  Age: 74 Year
  Sex: Male

DRUGS (2)
  1. METFORMIN HYDROCHLORIDE [Concomitant]
     Route: 048
  2. LANTUS [Suspect]
     Indication: TYPE 2 DIABETES MELLITUS
     Dosage: DOSE:20 UNIT(S)
     Route: 058
     Dates: start: 20090607, end: 20110121

REACTIONS (2)
  - MEDICATION ERROR [None]
  - DEATH [None]
